FAERS Safety Report 15311397 (Version 1)
Quarter: 2018Q3

REPORT INFORMATION
  Report Type: Spontaneous
  Country: PR (occurrence: PR)
  Receive Date: 20180814
  Receipt Date: 20180814
  Transmission Date: 20181010
  Serious: Yes (Other)
  Sender: FDA-Public Use
  Company Number: None

PATIENT
  Age: 45 Year
  Sex: Female
  Weight: 77.85 kg

DRUGS (1)
  1. OPTIRAY [Suspect]
     Active Substance: IOVERSOL
     Indication: CHOLECYSTITIS CHRONIC
     Route: 044
     Dates: start: 20180802, end: 20180802

REACTIONS (2)
  - Feeling hot [None]
  - Dyspnoea [None]

NARRATIVE: CASE EVENT DATE: 20180802
